FAERS Safety Report 10658456 (Version 1)
Quarter: 2014Q4

REPORT INFORMATION
  Report Type: Spontaneous
  Country: US (occurrence: US)
  Receive Date: 20141217
  Receipt Date: 20141217
  Transmission Date: 20150529
  Serious: Yes (Hospitalization)
  Sender: FDA-Public Use
  Company Number: US-SA-2014SA170780

PATIENT
  Sex: Female

DRUGS (1)
  1. LOVENOX [Suspect]
     Active Substance: ENOXAPARIN SODIUM
     Indication: GASTRIC BYPASS
     Route: 065
     Dates: start: 20140317

REACTIONS (5)
  - Platelet count decreased [Unknown]
  - Cerebrovascular accident [Unknown]
  - Headache [Unknown]
  - Application site discolouration [Unknown]
  - Haematemesis [Unknown]

NARRATIVE: CASE EVENT DATE: 2014
